FAERS Safety Report 15397970 (Version 2)
Quarter: 2021Q1

REPORT INFORMATION
  Report Type: Spontaneous
  Country: US (occurrence: US)
  Receive Date: 20180918
  Receipt Date: 20210105
  Transmission Date: 20210419
  Serious: Yes (Other)
  Sender: FDA-Public Use
  Company Number: US-MYLANLABS-2018M1067710

PATIENT
  Sex: Female
  Weight: 68 kg

DRUGS (2)
  1. FENTANYL TRANSDERMAL SYSTEM [Suspect]
     Active Substance: FENTANYL
     Dosage: UNK UNK, Q2D, 75 MCG PER HOUR
     Route: 062
  2. FENTANYL TRANSDERMAL SYSTEM [Suspect]
     Active Substance: FENTANYL
     Indication: ARACHNOIDITIS
     Dosage: UNK
     Route: 062

REACTIONS (6)
  - Product availability issue [Unknown]
  - Feeling jittery [Unknown]
  - Hunger [Unknown]
  - Product quality issue [Unknown]
  - Product adhesion issue [Unknown]
  - Therapeutic product effect decreased [Not Recovered/Not Resolved]
